FAERS Safety Report 25523371 (Version 2)
Quarter: 2025Q3

REPORT INFORMATION
  Report Type: Spontaneous
  Country: RU (occurrence: RU)
  Receive Date: 20250707
  Receipt Date: 20250804
  Transmission Date: 20251021
  Serious: Yes (Hospitalization, Other)
  Sender: IPSEN BIOPHARMACEUTICALS, INC.
  Company Number: RU-IPSEN Group, Research and Development-2025-09812

PATIENT
  Age: 8 Year
  Sex: Male
  Weight: 18 kg

DRUGS (1)
  1. DYSPORT [Suspect]
     Active Substance: ABOBOTULINUMTOXINA
     Indication: Muscle spasticity
     Dates: start: 20250404, end: 20250404

REACTIONS (8)
  - Neuromuscular toxicity [Recovered/Resolved]
  - Choking [Unknown]
  - Malaise [Unknown]
  - Muscular weakness [Unknown]
  - Asthenia [Recovering/Resolving]
  - Dysphagia [Unknown]
  - Salivary hypersecretion [Recovering/Resolving]
  - Body temperature [Recovering/Resolving]

NARRATIVE: CASE EVENT DATE: 20250408
